FAERS Safety Report 7133400-X (Version None)
Quarter: 2010Q4

REPORT INFORMATION
  Report Type: 
  Country: None (occurrence: None)
  Receive Date: 20101202
  Receipt Date: 20101123
  Transmission Date: 20110411
  Serious: Yes (Other)
  Sender: FDA-Public Use
  Company Number: NL-PFIZER INC-2010156615

PATIENT
  Age: 38 Year
  Sex: Female
  Weight: 86 kg

DRUGS (7)
  1. LYRICA [Suspect]
     Indication: POST-TRAUMATIC STRESS DISORDER
     Dosage: 75 MG, 3X/DAY
     Dates: start: 20090127, end: 20100701
  2. LYRICA [Suspect]
     Dosage: 150 MG, 3X/DAY
     Dates: end: 20100701
  3. ARCOXIA [Suspect]
     Indication: POST-TRAUMATIC STRESS DISORDER
     Dosage: 120 MG, 1X/DAY
     Dates: start: 20090814, end: 20100701
  4. FEMODENE [Concomitant]
     Dosage: UNK
     Dates: start: 19980506
  5. OXAZEPAM [Concomitant]
     Indication: PAIN
     Dosage: 10 MG, 3X/DAY
     Dates: start: 20060626
  6. VENLAFAXINE [Concomitant]
     Dosage: 75 MG, UNK
     Dates: start: 20070308
  7. VENLAFAXINE [Concomitant]
     Dosage: 37.5 MG, UNK
     Dates: start: 20090401

REACTIONS (5)
  - MENTAL IMPAIRMENT [None]
  - MOOD SWINGS [None]
  - SPEECH DISORDER [None]
  - TUNNEL VISION [None]
  - WEIGHT INCREASED [None]
